FAERS Safety Report 6040123-7 (Version None)
Quarter: 2009Q1

REPORT INFORMATION
  Report Type: 
  Country: None (occurrence: None)
  Receive Date: 20090116
  Receipt Date: 20080114
  Transmission Date: 20090719
  Serious: No
  Sender: FDA-Public Use
  Company Number: US-BRISTOL-MYERS SQUIBB COMPANY-14017453

PATIENT
  Age: 70 Year
  Sex: Female
  Weight: 109 kg

DRUGS (5)
  1. ABILIFY [Suspect]
     Indication: DEPRESSION
     Route: 048
     Dates: start: 20071201
  2. PROZAC [Concomitant]
  3. LASIX [Concomitant]
  4. LITHIUM [Concomitant]
  5. HYDROCHLOROTHIAZIDE [Concomitant]

REACTIONS (1)
  - WEIGHT INCREASED [None]
